FAERS Safety Report 5137144-5 (Version None)
Quarter: 2006Q4

REPORT INFORMATION
  Report Type: 
  Country: None (occurrence: None)
  Receive Date: 20061030
  Receipt Date: 20050823
  Transmission Date: 20070319
  Serious: No
  Sender: FDA-Public Use
  Company Number: US-GLAXOSMITHKLINE-A0571445A

PATIENT
  Age: 61 Year
  Sex: Female

DRUGS (3)
  1. ADVAIR HFA [Suspect]
     Indication: ASTHMA
     Dosage: 1PUFF TWICE PER DAY
     Route: 055
     Dates: start: 20020101
  2. COMBIVENT [Concomitant]
  3. SINGULAIR [Concomitant]

REACTIONS (3)
  - MOUTH ULCERATION [None]
  - TOOTH DISORDER [None]
  - TOOTH EROSION [None]
